FAERS Safety Report 22521717 (Version 1)
Quarter: 2023Q2

REPORT INFORMATION
  Report Type: Spontaneous
  Country: US (occurrence: US)
  Receive Date: 20230605
  Receipt Date: 20230605
  Transmission Date: 20230722
  Serious: No
  Sender: FDA-Public Use
  Company Number: US-AVEO ONCOLOGY-2023-AVEO-US000416

PATIENT

DRUGS (18)
  1. FOTIVDA [Suspect]
     Active Substance: TIVOZANIB HYDROCHLORIDE
     Indication: Renal cell carcinoma
     Dosage: 1.34 MG, DAILY FOR 21 DAYS WITH 7 DAYS OFF (28-DAY CYCLE)
     Route: 048
     Dates: start: 20230517
  2. AFINITOR [Concomitant]
     Active Substance: EVEROLIMUS
  3. ASPIRIN [Concomitant]
     Active Substance: ASPIRIN
  4. CELEBREX [Concomitant]
     Active Substance: CELECOXIB
  5. CLOBETASOL [Concomitant]
     Active Substance: CLOBETASOL
  6. COLCHICINE [Concomitant]
     Active Substance: COLCHICINE
  7. ZINC [Concomitant]
     Active Substance: ZINC
  8. DEXAMETHASONE [Concomitant]
     Active Substance: DEXAMETHASONE
  9. FLONASE [Concomitant]
     Active Substance: FLUTICASONE PROPIONATE
  10. NARCAN [Concomitant]
     Active Substance: NALOXONE HYDROCHLORIDE
  11. OMEPRAZOLE [Concomitant]
     Active Substance: OMEPRAZOLE
  12. PREDNISONE [Concomitant]
     Active Substance: PREDNISONE
  13. TAMSULOSIN [Concomitant]
     Active Substance: TAMSULOSIN
  14. TRAMADOL [Concomitant]
     Active Substance: TRAMADOL
  15. TYLENOL [Concomitant]
     Active Substance: ACETAMINOPHEN
  16. VITAMIN D3 [Concomitant]
     Active Substance: CHOLECALCIFEROL
  17. ZOFRAN [Concomitant]
     Active Substance: ONDANSETRON HYDROCHLORIDE
  18. ZYRTEC [Concomitant]
     Active Substance: CETIRIZINE HYDROCHLORIDE

REACTIONS (2)
  - Accidental overdose [Recovered/Resolved]
  - Confusional state [Unknown]

NARRATIVE: CASE EVENT DATE: 20230501
